FAERS Safety Report 15147478 (Version 1)
Quarter: 2018Q3

REPORT INFORMATION
  Report Type: Spontaneous
  Country: GB (occurrence: GB)
  Receive Date: 20180716
  Receipt Date: 20180716
  Transmission Date: 20181010
  Serious: Yes (Hospitalization)
  Sender: FDA-Public Use
  Company Number: GB-TEVA-2018-GB-925617

PATIENT
  Age: 82 Year
  Sex: Female

DRUGS (17)
  1. NICORANDIL [Concomitant]
     Active Substance: NICORANDIL
     Dosage: 20 MILLIGRAM DAILY;
     Route: 065
  2. EVACAL D3 CHEWABLE [Concomitant]
     Dosage: 2 DOSAGE FORMS DAILY; 1500MG/400UNIT
     Route: 065
  3. OMEPRAZOLE. [Concomitant]
     Active Substance: OMEPRAZOLE
     Dosage: 20 MILLIGRAM DAILY; STOPPED ON LAST ADMISSION AND CHANGED TO LANSOPRAZOLE.
     Route: 065
  4. MOXONIDINE [Concomitant]
     Active Substance: MOXONIDINE
     Dosage: 400 MICROGRAM DAILY;
     Route: 065
  5. DOXAZOSIN [Concomitant]
     Active Substance: DOXAZOSIN\DOXAZOSIN MESYLATE
     Dosage: 16 MILLIGRAM DAILY;
     Route: 065
  6. APIXABAN [Concomitant]
     Active Substance: APIXABAN
     Dosage: 5 MILLIGRAM DAILY;
     Route: 065
  7. FUROSEMIDE. [Suspect]
     Active Substance: FUROSEMIDE
     Dosage: 80 MILLIGRAM DAILY; MORNING
     Route: 065
  8. LANSOPRAZOLE. [Concomitant]
     Active Substance: LANSOPRAZOLE
     Dosage: 15 MILLIGRAM DAILY;
     Route: 065
  9. ATORVASTATIN [Concomitant]
     Active Substance: ATORVASTATIN
     Dosage: 80 MILLIGRAM DAILY; NIGHTLY
     Route: 065
  10. DOCUSATE [Concomitant]
     Active Substance: DOCUSATE
     Dosage: 400 MILLIGRAM DAILY;
     Route: 065
  11. IVABRADINE [Concomitant]
     Active Substance: IVABRADINE
     Dosage: 15 MILLIGRAM DAILY;
     Route: 065
  12. PERINDOPRIL [Suspect]
     Active Substance: PERINDOPRIL
     Dosage: 8 MILLIGRAM DAILY; MORNING
     Route: 065
  13. AMIODARONE [Concomitant]
     Active Substance: AMIODARONE
     Dosage: TDS FOR 7 DAYS THEN BD FOR 7 DAYS THEN ONCE A DAY. PATIENT DUE TO REDUCE TO TWICE A DAY ON 24/11/17
     Route: 065
     Dates: start: 201711
  14. RANOLAZINE. [Concomitant]
     Active Substance: RANOLAZINE
     Dosage: 1000 MILLIGRAM DAILY; DOSE INCREASED ON LAST ADMISSION TO 750MG MODIFIED RELEASE TWICE A DAY.
     Route: 065
  15. FOLIC ACID. [Concomitant]
     Active Substance: FOLIC ACID
     Dosage: 5 MILLIGRAM DAILY;
     Route: 065
  16. BRALTUS [Concomitant]
     Dosage: 10 MICROGRAM DAILY; THE CONTENTS OF ONE CAPSULE VIA THE ZONDA DEVICE.
     Route: 055
  17. SERETIDE [Concomitant]
     Active Substance: FLUTICASONE PROPIONATE\SALMETEROL XINAFOATE
     Dosage: 2 DOSAGE FORMS DAILY; 50 MICROGRAM /500 MICROGRAM
     Route: 055

REACTIONS (1)
  - Acute kidney injury [Recovered/Resolved]
